FAERS Safety Report 5025967-2 (Version None)
Quarter: 2006Q2

REPORT INFORMATION
  Report Type: 
  Country: None (occurrence: None)
  Receive Date: 20060614
  Receipt Date: 20060519
  Transmission Date: 20061013
  Serious: No
  Sender: FDA-Public Use
  Company Number: FRWYE639119MAY06

PATIENT
  Sex: Male

DRUGS (1)
  1. ENBREL [Suspect]
     Indication: RHEUMATOID ARTHRITIS
     Dosage: UNKNOWN
     Route: 058
     Dates: start: 20050401, end: 20060420

REACTIONS (3)
  - CONDITION AGGRAVATED [None]
  - ECZEMA [None]
  - TOXIC SKIN ERUPTION [None]
